FAERS Safety Report 4627950-5 (Version None)
Quarter: 2005Q2

REPORT INFORMATION
  Report Type: 
  Country: None (occurrence: None)
  Receive Date: 20050401
  Receipt Date: 20050328
  Transmission Date: 20051028
  Serious: Yes (Other)
  Sender: FDA-Public Use
  Company Number: 004488

PATIENT
  Sex: Female

DRUGS (2)
  1. MEDROXYPROGESTERONE ACETATE [Suspect]
     Dates: start: 19860801, end: 20021101
  2. PREMARIN [Suspect]
     Dates: start: 19860801, end: 20021101

REACTIONS (1)
  - BREAST CANCER FEMALE [None]
